FAERS Safety Report 25596791 (Version 3)
Quarter: 2025Q3

REPORT INFORMATION
  Report Type: Spontaneous
  Country: US (occurrence: US)
  Receive Date: 20250723
  Receipt Date: 20250912
  Transmission Date: 20251021
  Serious: No
  Sender: PFIZER
  Company Number: US-PFIZER INC-202500147491

PATIENT
  Age: 14 Year
  Sex: Male

DRUGS (2)
  1. GENOTROPIN [Suspect]
     Active Substance: SOMATROPIN
     Indication: Growth hormone deficiency
     Dates: start: 20250529
  2. GENOTROPIN [Suspect]
     Active Substance: SOMATROPIN
     Dosage: 12 MG AT NIGHT TO BE ADMINISTERED IN THIGH OR BUTTCHECK

REACTIONS (4)
  - Device use error [Unknown]
  - Device material issue [Unknown]
  - Needle issue [Unknown]
  - Drug dose omission by device [Unknown]
